FAERS Safety Report 10364246 (Version 3)
Quarter: 2014Q3

REPORT INFORMATION
  Report Type: Spontaneous
  Country: IT (occurrence: IT)
  Receive Date: 20140806
  Receipt Date: 20140922
  Transmission Date: 20150326
  Serious: Yes (Congenital Anomaly)
  Sender: FDA-Public Use
  Company Number: IT-BIOGENIDEC-2014BI077628

PATIENT
  Age: 0 Day
  Sex: Male
  Weight: 3 kg

DRUGS (1)
  1. TYSABRI [Suspect]
     Active Substance: NATALIZUMAB
     Indication: MATERNAL EXPOSURE TIMING UNSPECIFIED
     Route: 064
     Dates: start: 20120713, end: 20131030

REACTIONS (1)
  - Frenulum breve [Unknown]

NARRATIVE: CASE EVENT DATE: 20140718
